FAERS Safety Report 25964111 (Version 1)
Quarter: 2025Q4

REPORT INFORMATION
  Report Type: Spontaneous
  Country: EU (occurrence: EU)
  Receive Date: 20251027
  Receipt Date: 20251027
  Transmission Date: 20260117
  Serious: Yes (Hospitalization)
  Sender: AMGEN
  Company Number: EU-AMGEN-SWESP2025208855

PATIENT

DRUGS (1)
  1. BEVACIZUMAB [Suspect]
     Active Substance: BEVACIZUMAB
     Indication: Neovascular age-related macular degeneration
     Dosage: 25 MILLIGRAM PER MILLILITRE, QMO (3 INJECTIONS)

REACTIONS (6)
  - Depression [Unknown]
  - Anxiety [Unknown]
  - Stress [Unknown]
  - Emotional distress [Unknown]
  - Drug effect less than expected [Unknown]
  - Off label use [Unknown]
